FAERS Safety Report 17926261 (Version 1)
Quarter: 2020Q2

REPORT INFORMATION
  Report Type: Spontaneous
  Country: HU (occurrence: HU)
  Receive Date: 20200623
  Receipt Date: 20200623
  Transmission Date: 20200714
  Serious: Yes (Other)
  Sender: FDA-Public Use
  Company Number: HU-INCYTE CORPORATION-2020IN005820

PATIENT

DRUGS (5)
  1. LITALIR [Suspect]
     Active Substance: HYDROXYUREA
     Dosage: UNK
     Route: 065
     Dates: start: 20091202, end: 20120412
  2. LITALIR [Suspect]
     Active Substance: HYDROXYUREA
     Dosage: UNK
     Route: 065
     Dates: start: 20131120, end: 20140901
  3. LITALIR [Suspect]
     Active Substance: HYDROXYUREA
     Indication: PRODUCT USED FOR UNKNOWN INDICATION
     Dosage: UNK
     Route: 065
     Dates: start: 20050915, end: 20070917
  4. JAKAVI [Suspect]
     Active Substance: RUXOLITINIB
     Indication: MYELOFIBROSIS
     Dosage: 20 MG, BID
     Route: 065
     Dates: start: 20140901
  5. MEDROL [Concomitant]
     Active Substance: METHYLPREDNISOLONE
     Indication: PRODUCT USED FOR UNKNOWN INDICATION
     Dosage: UNK
     Route: 065

REACTIONS (15)
  - Bone disorder [Unknown]
  - Seborrhoeic keratosis [Unknown]
  - Osteolysis [Unknown]
  - Lung abscess [Unknown]
  - Basal cell carcinoma [Unknown]
  - Myelofibrosis [Unknown]
  - Leukoerythroblastosis [Unknown]
  - Skin disorder [Unknown]
  - Second primary malignancy [Unknown]
  - Renal disorder [Unknown]
  - Brain abscess [Unknown]
  - Basophil percentage increased [Unknown]
  - Squamous cell carcinoma of head and neck [Unknown]
  - Keratoacanthoma [Unknown]
  - Staphylococcal infection [Unknown]

NARRATIVE: CASE EVENT DATE: 20140901
